FAERS Safety Report 6535058-7 (Version None)
Quarter: 2010Q1

REPORT INFORMATION
  Report Type: 
  Country: None (occurrence: None)
  Receive Date: 20100111
  Receipt Date: 20100111
  Transmission Date: 20100710
  Serious: Yes (Disabling)
  Sender: FDA-Public Use
  Company Number: None

PATIENT
  Age: 58 Year
  Sex: Female
  Weight: 68.0396 kg

DRUGS (1)
  1. EVISTA [Suspect]
     Indication: BREAST CANCER

REACTIONS (2)
  - NEOVASCULARISATION [None]
  - RETINAL VEIN OCCLUSION [None]
